FAERS Safety Report 8018031-1 (Version None)
Quarter: 2012Q1

REPORT INFORMATION
  Report Type: 
  Country: None (occurrence: None)
  Receive Date: 20120103
  Receipt Date: 20111227
  Transmission Date: 20120608
  Serious: Yes (Other)
  Sender: FDA-Public Use
  Company Number: US-JNJFOC-20111202054

PATIENT
  Sex: Male
  Weight: 72.58 kg

DRUGS (3)
  1. REMICADE [Suspect]
     Indication: RHEUMATOID ARTHRITIS
     Dosage: EVERY 6-8 WEEKS
     Route: 042
     Dates: start: 20110101
  2. PREDNISONE TAB [Concomitant]
     Route: 065
  3. METHADONE HCL [Concomitant]
     Route: 065

REACTIONS (8)
  - MALAISE [None]
  - RHEUMATOID ARTHRITIS [None]
  - NAUSEA [None]
  - ACTIVITIES OF DAILY LIVING IMPAIRED [None]
  - PAIN [None]
  - DRUG INEFFECTIVE [None]
  - VISION BLURRED [None]
  - INFUSION RELATED REACTION [None]
